FAERS Safety Report 9007953 (Version 1)
Quarter: 2013Q1

REPORT INFORMATION
  Report Type: Spontaneous
  Country: US (occurrence: US)
  Receive Date: 20130111
  Receipt Date: 20130111
  Transmission Date: 20140127
  Serious: Yes (Other)
  Sender: FDA-Public Use
  Company Number: US-009507513-1012USA00440

PATIENT
  Age: 7 Year
  Sex: Female
  Weight: 27.22 kg

DRUGS (2)
  1. SINGULAIR [Suspect]
     Indication: MYCOTIC ALLERGY
     Dosage: 5 MG, QD
     Route: 048
     Dates: start: 20090301, end: 20090530
  2. SINGULAIR [Suspect]
     Dosage: 5 MG, QD
     Route: 048
     Dates: start: 20090915, end: 20091130

REACTIONS (5)
  - Personality change [Recovering/Resolving]
  - Anxiety [Recovering/Resolving]
  - Crying [Recovering/Resolving]
  - Morbid thoughts [Recovering/Resolving]
  - Obsessive thoughts [Recovering/Resolving]
